FAERS Safety Report 10219583 (Version 1)
Quarter: 2014Q1

REPORT INFORMATION
  Report Type: Spontaneous
  Country: US (occurrence: None)
  Receive Date: 20140306
  Receipt Date: 20140306
  Transmission Date: 20141002
  Serious: Yes (Other)
  Sender: FDA-Public Use
  Company Number: 163-21880-13100694

PATIENT
  Age: 86 Year
  Sex: Male

DRUGS (9)
  1. REVLIMID (LENALIDOMIDE) (5 MILLIGRAM, CAPSULES) [Suspect]
     Indication: PLASMA CELL MYELOMA
     Dosage: 1 IN 1 D
     Route: 048
     Dates: start: 201205
  2. ARANESP ALBUMIN FREE (DARBEPOETIN ALFA) [Concomitant]
  3. AREDIA (PAMIDRONATE DISODIUM) [Concomitant]
  4. POTASSIUM [Concomitant]
  5. OMEPRAZOLE [Concomitant]
  6. NITROGLYCERIN (CLYCERYL TRINITRATE) [Concomitant]
  7. ISOSORBIDE MONONITRATE [Concomitant]
  8. FUROSEMIDE [Concomitant]
  9. ALLOPURINOL [Concomitant]

REACTIONS (2)
  - Renal failure chronic [None]
  - Condition aggravated [None]
